FAERS Safety Report 10139890 (Version 2)
Quarter: 2015Q1

REPORT INFORMATION
  Report Type: Other
  Country: US (occurrence: US)
  Receive Date: 20140429
  Receipt Date: 20150224
  Transmission Date: 20150720
  Serious: Yes (Death, Hospitalization, Other)
  Sender: FDA-Public Use
  Company Number: US-GSKPPD-2014GSK042643

PATIENT
  Age: 66 Year
  Sex: Male

DRUGS (8)
  1. ALTACE [Concomitant]
     Active Substance: RAMIPRIL
  2. ASPIRIN. [Concomitant]
     Active Substance: ASPIRIN
  3. COUMADINE [Concomitant]
     Active Substance: WARFARIN SODIUM
  4. AVANDIA [Suspect]
     Active Substance: ROSIGLITAZONE MALEATE
     Indication: DIABETES MELLITUS
     Dosage: DATES OF AVANDIA USE COULD NOT BE CONFIRMED IN RECORDS REVIEWED.
     Route: 048
  5. METOPROLOL [Concomitant]
     Active Substance: METOPROLOL
  6. COREG [Concomitant]
     Active Substance: CARVEDILOL
     Dates: end: 200911
  7. LASIX [Concomitant]
     Active Substance: FUROSEMIDE
  8. ALDACTONE [Concomitant]
     Active Substance: SPIRONOLACTONE

REACTIONS (3)
  - Cardiac failure [Recovered/Resolved]
  - Cardio-respiratory arrest [Fatal]
  - Myocardial infarction [Unknown]

NARRATIVE: CASE EVENT DATE: 20091104
